FAERS Safety Report 25646908 (Version 1)
Quarter: 2025Q3

REPORT INFORMATION
  Report Type: Spontaneous
  Country: GB (occurrence: GB)
  Receive Date: 20250805
  Receipt Date: 20250805
  Transmission Date: 20251021
  Serious: Yes (Hospitalization, Other)
  Sender: JOHNSON AND JOHNSON
  Company Number: None

PATIENT
  Age: 69 Year
  Sex: Male
  Weight: 82 kg

DRUGS (6)
  1. TOLODODEKIN ALFA [Suspect]
     Active Substance: TOLODODEKIN ALFA
     Indication: Plasma cell myeloma
     Dates: start: 20250804, end: 20250804
  2. DEXAMETHASONE [Concomitant]
     Active Substance: DEXAMETHASONE
     Indication: Adjuvant therapy
     Dates: start: 20250804
  3. BORTEZOMIB [Concomitant]
     Active Substance: BORTEZOMIB
     Indication: Plasma cell myeloma
     Dates: start: 20250804
  4. ACCORD-UK ACICLOVIR [Concomitant]
     Indication: Prophylaxis
     Dates: start: 20250804
  5. ALLOPURINOL [Concomitant]
     Active Substance: ALLOPURINOL
     Indication: Adjuvant therapy
     Dates: start: 20250804
  6. FLUCONAZOLE [Concomitant]
     Active Substance: FLUCONAZOLE
     Indication: Prophylaxis
     Dates: start: 20250804

REACTIONS (1)
  - Intraocular pressure test [Recovering/Resolving]

NARRATIVE: CASE EVENT DATE: 20250804
